FAERS Safety Report 10642403 (Version 1)
Quarter: 2014Q4

REPORT INFORMATION
  Report Type: Spontaneous
  Country: US (occurrence: None)
  Receive Date: 20141208
  Receipt Date: 20141208
  Transmission Date: 20150529
  Serious: Yes (Other)
  Sender: FDA-Public Use
  Company Number: None

PATIENT
  Age: 52 Year
  Sex: Female

DRUGS (1)
  1. BRINTELLIX [Suspect]
     Active Substance: VORTIOXETINE HYDROBROMIDE
     Indication: DEPRESSION
     Dosage: 1 PILL, ONCE DAILY, TAKEN BY MOUTH
     Route: 048
     Dates: start: 20141204, end: 20141205

REACTIONS (6)
  - Nipple pain [None]
  - Breast tenderness [None]
  - Drug interaction [None]
  - Nausea [None]
  - Vomiting [None]
  - Muscle tightness [None]

NARRATIVE: CASE EVENT DATE: 20141205
